FAERS Safety Report 8450278-2 (Version None)
Quarter: 2012Q2

REPORT INFORMATION
  Report Type: 
  Country: None (occurrence: None)
  Receive Date: 20120614
  Receipt Date: 20120614
  Transmission Date: 20120825
  Serious: Yes (Other)
  Sender: FDA-Public Use
  Company Number: None

PATIENT
  Weight: 73.4827 kg

DRUGS (1)
  1. CYMBALTA [Suspect]
     Indication: MENOPAUSAL SYMPTOMS
     Dosage: 30 MG, 1XDAILY
     Dates: start: 20120304, end: 20120610

REACTIONS (6)
  - URTICARIA [None]
  - SKIN EXFOLIATION [None]
  - RASH PRURITIC [None]
  - SLEEP DISORDER [None]
  - SCAR [None]
  - ERYTHEMA [None]
